FAERS Safety Report 20959997 (Version 2)
Quarter: 2022Q2

REPORT INFORMATION
  Report Type: Spontaneous
  Country: FR (occurrence: FR)
  Receive Date: 20220615
  Receipt Date: 20220622
  Transmission Date: 20220720
  Serious: Yes (Hospitalization, Other)
  Sender: FDA-Public Use
  Company Number: FR-MLMSERVICE-20220527-3581327-1

PATIENT
  Age: 29 Year
  Sex: Male
  Weight: 99 kg

DRUGS (12)
  1. VALPROIC ACID [Interacting]
     Active Substance: VALPROIC ACID
     Indication: Schizoaffective disorder
     Dosage: 2000 MILLIGRAM, ONCE A DAY
     Route: 065
  2. VALPROIC ACID [Interacting]
     Active Substance: VALPROIC ACID
     Dosage: 2500 MILLIGRAM, ONCE A DAY
     Route: 065
  3. VALPROIC ACID [Interacting]
     Active Substance: VALPROIC ACID
     Dosage: 1500 MILLIGRAM, ONCE A DAY
     Route: 065
  4. LITHIUM [Interacting]
     Active Substance: LITHIUM
     Indication: Affective disorder
     Dosage: 400 MILLIGRAM, ONCE A DAY
     Route: 065
  5. LITHIUM [Interacting]
     Active Substance: LITHIUM
     Indication: Schizoaffective disorder
  6. DIAZEPAM [Concomitant]
     Active Substance: DIAZEPAM
     Indication: Supplementation therapy
     Dosage: UNK
     Route: 065
  7. DIAZEPAM [Concomitant]
     Active Substance: DIAZEPAM
     Indication: Schizoaffective disorder
  8. LEVOMEPROMAZINE [Concomitant]
     Active Substance: LEVOMEPROMAZINE
     Indication: Supplementation therapy
     Dosage: UNK
     Route: 065
  9. LEVOMEPROMAZINE [Concomitant]
     Active Substance: LEVOMEPROMAZINE
     Indication: Schizoaffective disorder
  10. PALIPERIDONE [Concomitant]
     Active Substance: PALIPERIDONE
     Indication: Mania
     Dosage: 100 MILLIGRAM (EVERY 28 DAYS) (PALIPERIDONE ER)
     Route: 065
  11. PALIPERIDONE [Concomitant]
     Active Substance: PALIPERIDONE
     Dosage: 150 MILLIGRAM (EVERY 28 DAYS) (PALIPERIDONE ER)
     Route: 065
  12. RISPERIDONE [Concomitant]
     Active Substance: RISPERIDONE
     Indication: Mania
     Dosage: 4 MILLIGRAM, ONCE A DAY
     Route: 065

REACTIONS (7)
  - Drug interaction [Recovered/Resolved]
  - Drug level increased [Recovered/Resolved]
  - Hyperammonaemic encephalopathy [Recovered/Resolved]
  - Disorientation [Recovered/Resolved]
  - Psychomotor retardation [Recovered/Resolved]
  - Confusional state [Recovered/Resolved]
  - Cognitive disorder [Recovered/Resolved]
